FAERS Safety Report 5599739-4 (Version None)
Quarter: 2008Q1

REPORT INFORMATION
  Report Type: 
  Country: None (occurrence: None)
  Receive Date: 20080118
  Receipt Date: 20080118
  Transmission Date: 20080703
  Serious: Yes (Disabling)
  Sender: FDA-Public Use
  Company Number: None

PATIENT
  Age: 45 Year
  Sex: Male
  Weight: 102.0593 kg

DRUGS (2)
  1. PEGASYS [Suspect]
     Indication: HEPATITIS C
     Dosage: ? 1 SHOT WEEKLY SHOT
     Dates: start: 20041101, end: 20051201
  2. RIBAVIRIN [Suspect]
     Dosage: ? 6 PILLS DAILY PILLS

REACTIONS (1)
  - PAIN [None]
